FAERS Safety Report 11517460 (Version 1)
Quarter: 2015Q3

REPORT INFORMATION
  Report Type: Spontaneous
  Country: US (occurrence: None)
  Receive Date: 20150916
  Receipt Date: 20150916
  Transmission Date: 20151125
  Serious: Yes (Hospitalization)
  Sender: FDA-Public Use
  Company Number: None

PATIENT
  Age: 68 Year
  Sex: Male
  Weight: 102.3 kg

DRUGS (1)
  1. WARFARIN [Suspect]
     Active Substance: WARFARIN
     Dosage: MG
     Route: 048
     Dates: start: 20120726

REACTIONS (4)
  - Toxicity to various agents [None]
  - Anaemia [None]
  - Drug interaction [None]
  - International normalised ratio abnormal [None]

NARRATIVE: CASE EVENT DATE: 20150715
